FAERS Safety Report 10733838 (Version 1)
Quarter: 2015Q1

REPORT INFORMATION
  Report Type: Spontaneous
  Country: US (occurrence: US)
  Receive Date: 20150123
  Receipt Date: 20150123
  Transmission Date: 20150721
  Serious: No
  Sender: FDA-Public Use
  Company Number: US-ASTRAZENECA-2014SE84036

PATIENT
  Age: 58 Year
  Sex: Female

DRUGS (6)
  1. CODEINE [Suspect]
     Active Substance: CODEINE
     Route: 065
  2. SYNTHROID [Suspect]
     Active Substance: LEVOTHYROXINE SODIUM
     Route: 065
  3. NEXIUM [Suspect]
     Active Substance: ESOMEPRAZOLE MAGNESIUM
     Route: 048
  4. PRISTIQ EXTENDED RELEASE [Suspect]
     Active Substance: DESVENLAFAXINE SUCCINATE
     Route: 065
  5. PENICILLINS [Suspect]
     Active Substance: PENICILLIN
     Route: 065
  6. ASA [Suspect]
     Active Substance: ASPIRIN
     Route: 065

REACTIONS (1)
  - Drug hypersensitivity [Unknown]
